FAERS Safety Report 9500473 (Version 1)
Quarter: 2013Q3

REPORT INFORMATION
  Report Type: Spontaneous
  Country: US (occurrence: US)
  Receive Date: 20130905
  Receipt Date: 20130905
  Transmission Date: 20140515
  Serious: Yes (Hospitalization)
  Sender: FDA-Public Use
  Company Number: US-BAYER-2013-106627

PATIENT
  Age: 41 Year
  Sex: Female
  Weight: 68.93 kg

DRUGS (15)
  1. YASMIN [Suspect]
  2. OCELLA [Suspect]
  3. ZARAH [Suspect]
     Dosage: UNK
     Dates: start: 20101113, end: 20110328
  4. KETOROLAC [Concomitant]
     Dosage: 10 MG, UNK
  5. TRAMADOL [Concomitant]
     Dosage: 50 MG, UNK
  6. CYTOMEL [Concomitant]
     Dosage: 25 MCG
  7. PREDNISONE [Concomitant]
     Dosage: 5 MG, UNK
  8. LEVOXYL [Concomitant]
     Dosage: 0.2 MG, UNK
  9. PROMETHAZINE - CODEINE [CITRIC AC,CODEINE,PROMETHAZ,NA+ CITR AC,SU [Concomitant]
     Dosage: 1 TEASPOON EVERY 4-6 HOURS
  10. ADDERALL [Concomitant]
     Indication: ATTENTION DEFICIT/HYPERACTIVITY DISORDER
     Dosage: 30 MG, TWICE DAILY
     Dates: start: 20110415
  11. TRAZODONE [Concomitant]
     Indication: AFRICAN TRYPANOSOMIASIS
     Dosage: ONCE DAILY
     Dates: start: 20110415
  12. SINGULAIR [Concomitant]
     Indication: ASTHMA
     Dosage: 10 MG, DAILY
     Dates: start: 20110415
  13. PREVACID [Concomitant]
     Dosage: 30 MG, DAILY
     Dates: start: 20110415
  14. TOPAMAX [Concomitant]
     Dosage: 100 MG, DAILY
  15. WELLBUTRIN XL [Concomitant]
     Indication: DEPRESSION
     Dosage: 150 MG, DAILY
     Dates: start: 20110415

REACTIONS (1)
  - Deep vein thrombosis [None]
